FAERS Safety Report 17345830 (Version 1)
Quarter: 2020Q1

REPORT INFORMATION
  Report Type: Spontaneous
  Country: ES (occurrence: ES)
  Receive Date: 20200129
  Receipt Date: 20200129
  Transmission Date: 20200409
  Serious: Yes (Hospitalization)
  Sender: FDA-Public Use
  Company Number: ES-SAMSUNG BIOEPIS-SB-2020-02431

PATIENT
  Age: 40 Year
  Sex: Female

DRUGS (6)
  1. BENEPALI [Suspect]
     Active Substance: ETANERCEPT
     Indication: RHEUMATOID ARTHRITIS
     Route: 058
     Dates: start: 20190306, end: 20190531
  2. DIAZEPAM NORMON [Concomitant]
     Indication: ANXIETY
     Route: 048
     Dates: start: 20190331
  3. EUTIROX [Concomitant]
     Active Substance: LEVOTHYROXINE SODIUM
     Indication: HYPOTHYROIDISM
     Dates: start: 20101118
  4. SIMVASTATINA NORMON [Concomitant]
     Active Substance: SIMVASTATIN
     Indication: HYPERCHOLESTEROLAEMIA
     Dosage: TABLETS COVERED WITH EFG FILM
     Route: 048
     Dates: start: 20190107
  5. QUETIAPINA KERN PHARMA [Concomitant]
     Indication: DEPRESSION
     Dosage: TABLETS COVERED WITH EFG FILM
     Route: 048
     Dates: start: 20180125
  6. METOTREXATE [Suspect]
     Active Substance: METHOTREXATE SODIUM
     Indication: RHEUMATOID ARTHRITIS
     Route: 048
     Dates: start: 20160823, end: 20190531

REACTIONS (1)
  - Hepatitis [Recovered/Resolved]

NARRATIVE: CASE EVENT DATE: 20190531
